FAERS Safety Report 9663310 (Version 1)
Quarter: 2013Q4

REPORT INFORMATION
  Report Type: Spontaneous
  Country: US (occurrence: US)
  Receive Date: 20131101
  Receipt Date: 20131101
  Transmission Date: 20140711
  Serious: No
  Sender: FDA-Public Use
  Company Number: US-009507513-1310USA011526

PATIENT
  Age: 66 Year
  Sex: Female

DRUGS (5)
  1. PROVENTIL [Suspect]
     Indication: ASTHMA
     Dosage: TWO PUFFS IN THE MORNING TWO PUFFS IN THE EVENING
     Route: 055
  2. PROVENTIL [Suspect]
     Indication: EMPHYSEMA
  3. ALBUTEROL SULFATE [Concomitant]
  4. ADVAIR [Concomitant]
  5. ASPIRIN [Concomitant]
     Route: 048

REACTIONS (3)
  - Dyspnoea [Unknown]
  - Drug dose omission [Unknown]
  - Product quality issue [Unknown]
